FAERS Safety Report 8814686 (Version 2)
Quarter: 2012Q4

REPORT INFORMATION
  Report Type: 
  Country: US (occurrence: US)
  Receive Date: 20120928
  Receipt Date: 20121009
  Transmission Date: 20130627
  Serious: Yes (Other)
  Sender: FDA-Public Use
  Company Number: US-BAYER-2012-101124

PATIENT
  Age: 42 Year
  Sex: Female

DRUGS (1)
  1. MIRENA [Suspect]
     Dosage: 20 mcg/24hr, CONT
     Route: 015
     Dates: start: 201204

REACTIONS (11)
  - Lymphoma [None]
  - Impaired work ability [None]
  - Pelvic fluid collection [None]
  - Ovarian cyst [None]
  - Ovarian cyst ruptured [None]
  - Ascites [None]
  - Ovarian neoplasm [None]
  - Pelvic pain [None]
  - Stress [None]
  - Anxiety [None]
  - Metastases to liver [None]
